FAERS Safety Report 10266345 (Version 1)
Quarter: 2014Q2

REPORT INFORMATION
  Report Type: Spontaneous
  Country: US (occurrence: None)
  Receive Date: 20140625
  Receipt Date: 20140625
  Transmission Date: 20141212
  Serious: Yes (Disabling, Other)
  Sender: FDA-Public Use
  Company Number: None

PATIENT
  Age: 49 Year
  Sex: Female
  Weight: 78.02 kg

DRUGS (3)
  1. RADIESSE [Suspect]
     Indication: DRUG THERAPY
     Dosage: STRENGTH: 1.5     INJECTED BY PHYSICIAN^S ASSISTANT
     Dates: start: 20140218, end: 20140218
  2. STEROIDS [Concomitant]
  3. PAIN MEDICATION [Concomitant]

REACTIONS (3)
  - Swelling face [None]
  - Erythema [None]
  - Skin disorder [None]
